FAERS Safety Report 16214930 (Version 2)
Quarter: 2019Q2

REPORT INFORMATION
  Report Type: Spontaneous
  Country: AT (occurrence: AT)
  Receive Date: 20190418
  Receipt Date: 20190514
  Transmission Date: 20190711
  Serious: Yes (Hospitalization, Other)
  Sender: FDA-Public Use
  Company Number: AT-DSJP-DSE-2019-113114

PATIENT

DRUGS (1)
  1. LIXIANA [Suspect]
     Active Substance: EDOXABAN TOSYLATE
     Indication: ARRHYTHMIA
     Dosage: 60 MG, QD
     Route: 048
     Dates: end: 201902

REACTIONS (3)
  - Transient ischaemic attack [Unknown]
  - Gamma-glutamyltransferase increased [Recovering/Resolving]
  - Liver disorder [Recovering/Resolving]

NARRATIVE: CASE EVENT DATE: 2018
